FAERS Safety Report 19116113 (Version 2)
Quarter: 2021Q2

REPORT INFORMATION
  Report Type: Report from Study
  Country: US (occurrence: US)
  Receive Date: 20210410
  Receipt Date: 20210522
  Transmission Date: 20210717
  Serious: No
  Sender: FDA-Public Use
  Company Number: NVSC2021US078693

PATIENT
  Age: 61 Year
  Sex: Female

DRUGS (1)
  1. GILENYA [Suspect]
     Active Substance: FINGOLIMOD HYDROCHLORIDE
     Indication: RELAPSING-REMITTING MULTIPLE SCLEROSIS
     Dosage: 0.5 MG, QD
     Route: 048
     Dates: start: 20201227

REACTIONS (9)
  - Drug ineffective [Unknown]
  - Joint swelling [Not Recovered/Not Resolved]
  - Abdominal discomfort [Recovered/Resolved]
  - Anal incontinence [Unknown]
  - Nausea [Unknown]
  - Flatulence [Unknown]
  - Decreased appetite [Unknown]
  - Diarrhoea [Unknown]
  - Gait disturbance [Unknown]

NARRATIVE: CASE EVENT DATE: 20201227
